FAERS Safety Report 18666408 (Version 1)
Quarter: 2020Q4

REPORT INFORMATION
  Report Type: Spontaneous
  Country: US (occurrence: US)
  Receive Date: 20201227
  Receipt Date: 20201227
  Transmission Date: 20210114
  Serious: Yes (Other)
  Sender: FDA-Public Use
  Company Number: US-MACLEODS PHARMACEUTICALS US LTD-MAC2020029572

PATIENT

DRUGS (1)
  1. TRAMADOL. [Suspect]
     Active Substance: TRAMADOL
     Indication: PRODUCT USED FOR UNKNOWN INDICATION
     Dosage: UNK
     Route: 065

REACTIONS (7)
  - Toxicity to various agents [Not Recovered/Not Resolved]
  - Hypoglycaemia [Recovering/Resolving]
  - Seizure [Recovering/Resolving]
  - Depressed level of consciousness [Recovering/Resolving]
  - Clonus [Not Recovered/Not Resolved]
  - Drug use disorder [Unknown]
  - Hyperreflexia [Not Recovered/Not Resolved]
